FAERS Safety Report 4524217-0 (Version None)
Quarter: 2004Q4

REPORT INFORMATION
  Report Type: 
  Country: None (occurrence: None)
  Receive Date: 20041119
  Receipt Date: 20040817
  Transmission Date: 20050328
  Serious: No
  Sender: FDA-Public Use
  Company Number: PHEH2004US07684

PATIENT
  Age: 23 Year
  Sex: Female
  Weight: 74.8 kg

DRUGS (5)
  1. ZELNORM [Suspect]
     Indication: IRRITABLE BOWEL SYNDROME
     Dosage: 6 MG, BID, ORAL
     Route: 048
     Dates: end: 20040713
  2. ZELNORM [Suspect]
     Indication: IRRITABLE BOWEL SYNDROME
     Dosage: 6 MG, BID, ORAL
     Route: 048
     Dates: start: 20040708
  3. PRILOSEC [Suspect]
  4. LEXAPRO [Concomitant]
  5. PREVACID [Concomitant]

REACTIONS (5)
  - DIARRHOEA [None]
  - NAUSEA [None]
  - PHOTOSENSITIVE RASH [None]
  - RASH ERYTHEMATOUS [None]
  - RASH MACULAR [None]
